FAERS Safety Report 9731935 (Version 1)
Quarter: 2013Q4

REPORT INFORMATION
  Report Type: Spontaneous
  Country: US (occurrence: None)
  Receive Date: 20131203
  Receipt Date: 20131203
  Transmission Date: 20140711
  Serious: Yes (Death, Life-Threatening)
  Sender: FDA-Public Use
  Company Number: US-ALKEM-000277

PATIENT
  Age: 39 Year
  Sex: Male

DRUGS (1)
  1. METFORMIN (METFORMIN) [Suspect]

REACTIONS (7)
  - Hypotension [None]
  - Acute respiratory distress syndrome [None]
  - Hepatic failure [None]
  - Renal failure [None]
  - Completed suicide [None]
  - Haemodialysis [None]
  - Pneumonia [None]
